FAERS Safety Report 9505742 (Version 1)
Quarter: 2013Q1

REPORT INFORMATION
  Report Type: Spontaneous
  Country: US (occurrence: None)
  Receive Date: 20130220
  Receipt Date: 20130220
  Transmission Date: 20140127
  Serious: Yes (Other)
  Sender: FDA-Public Use
  Company Number: 1000040480

PATIENT
  Age: 20 Year
  Sex: Female

DRUGS (2)
  1. VIIBRYD [Suspect]
     Indication: ANXIETY
     Route: 048
     Dates: start: 2012, end: 2012
  2. BIRTH CONTROL (NOS) (BIRTH CONTROL) (NOS) [Concomitant]

REACTIONS (2)
  - Heart rate increased [None]
  - Off label use [None]
